FAERS Safety Report 6755543-2 (Version None)
Quarter: 2010Q2

REPORT INFORMATION
  Report Type: 
  Country: None (occurrence: None)
  Receive Date: 20100604
  Receipt Date: 20100525
  Transmission Date: 20101027
  Serious: Yes (Other)
  Sender: FDA-Public Use
  Company Number: SE-JNJFOC-20100509710

PATIENT
  Age: 24 Year
  Sex: Male

DRUGS (5)
  1. REMICADE [Suspect]
     Indication: CROHN'S DISEASE
     Route: 042
  2. AZATIOPRIN [Suspect]
     Indication: CROHN'S DISEASE
     Route: 048
  3. PENTASA TABLETS [Concomitant]
  4. BEHEPAN [Concomitant]
  5. DUROFERON [Concomitant]

REACTIONS (3)
  - GINGIVITIS [None]
  - IMMUNOSUPPRESSION [None]
  - PHARYNGITIS [None]
